FAERS Safety Report 8227529-2 (Version None)
Quarter: 2012Q1

REPORT INFORMATION
  Report Type: 
  Country: None (occurrence: None)
  Receive Date: 20120322
  Receipt Date: 20120314
  Transmission Date: 20120608
  Serious: Yes (Hospitalization, Other)
  Sender: FDA-Public Use
  Company Number: US-ASTELLAS-2011US005774

PATIENT
  Sex: Male
  Weight: 65 kg

DRUGS (1)
  1. PROGRAF [Suspect]
     Indication: LIVER TRANSPLANT
     Dosage: 2 MG, BID
     Route: 048
     Dates: start: 20100101

REACTIONS (6)
  - LIVER TRANSPLANT REJECTION [None]
  - TRANSPLANT REJECTION [None]
  - GASTROOESOPHAGEAL REFLUX DISEASE [None]
  - SMALL INTESTINE TRANSPLANT [None]
  - TREATMENT NONCOMPLIANCE [None]
  - EOSINOPHILIC OESOPHAGITIS [None]
